FAERS Safety Report 7002072-7 (Version None)
Quarter: 2010Q3

REPORT INFORMATION
  Report Type: 
  Country: None (occurrence: None)
  Receive Date: 20100920
  Receipt Date: 20071119
  Transmission Date: 20110219
  Serious: Yes (Other)
  Sender: FDA-Public Use
  Company Number: US-ASTRAZENECA-2007UW05583

PATIENT
  Age: 15126 Day
  Sex: Male
  Weight: 83 kg

DRUGS (3)
  1. SEROQUEL [Suspect]
     Indication: SLEEP DISORDER
     Route: 048
     Dates: start: 19980101, end: 20030101
  2. TRAZODONE HCL [Concomitant]
     Indication: SLEEP DISORDER
     Dosage: 25-50 MG
     Dates: start: 19960324
  3. WELLBUTRIN [Concomitant]
     Indication: DEPRESSION
     Dates: start: 19960324

REACTIONS (4)
  - DIABETES MELLITUS INADEQUATE CONTROL [None]
  - HYPERGLYCAEMIA [None]
  - PANCREATITIS ACUTE [None]
  - TYPE 2 DIABETES MELLITUS [None]
